FAERS Safety Report 18165314 (Version 3)
Quarter: 2020Q3

REPORT INFORMATION
  Report Type: Spontaneous
  Country: US (occurrence: US)
  Receive Date: 20200818
  Receipt Date: 20200827
  Transmission Date: 20201103
  Serious: No
  Sender: FDA-Public Use
  Company Number: US-BIOGEN-2020BI00905032

PATIENT
  Age: 40 Year
  Sex: Female
  Weight: 72.64 kg

DRUGS (10)
  1. ONDANSETRONE [Concomitant]
     Active Substance: ONDANSETRON
     Route: 065
  2. HYDROCODONE [Concomitant]
     Active Substance: HYDROCODONE
     Route: 065
  3. ACETAMINOPHEN. [Concomitant]
     Active Substance: ACETAMINOPHEN
     Route: 065
  4. ACYCLOVIR. [Concomitant]
     Active Substance: ACYCLOVIR
     Route: 065
  5. AVONEX [Suspect]
     Active Substance: INTERFERON BETA-1A
     Indication: MULTIPLE SCLEROSIS
     Route: 030
     Dates: start: 20200727
  6. AVONEX [Suspect]
     Active Substance: INTERFERON BETA-1A
  7. XANAX [Concomitant]
     Active Substance: ALPRAZOLAM
     Route: 065
  8. AVONEX [Suspect]
     Active Substance: INTERFERON BETA-1A
  9. ADVIL [Concomitant]
     Active Substance: IBUPROFEN
     Route: 065
  10. AVONEX [Suspect]
     Active Substance: INTERFERON BETA-1A
     Route: 030
     Dates: start: 20200727

REACTIONS (11)
  - Heart rate decreased [Recovered/Resolved]
  - Tendon rupture [Not Recovered/Not Resolved]
  - Injection site haemorrhage [Recovered/Resolved]
  - Headache [Recovered/Resolved]
  - Oropharyngeal discomfort [Recovered/Resolved]
  - Pain [Unknown]
  - Blood pressure increased [Recovered/Resolved]
  - Lethargy [Unknown]
  - Fatigue [Recovered/Resolved]
  - Injection site bruising [Not Recovered/Not Resolved]
  - Pyrexia [Recovered/Resolved]

NARRATIVE: CASE EVENT DATE: 20200727
